FAERS Safety Report 20501787 (Version 3)
Quarter: 2022Q3

REPORT INFORMATION
  Report Type: Report from Study
  Country: CA (occurrence: CA)
  Receive Date: 20220222
  Receipt Date: 20220719
  Transmission Date: 20221026
  Serious: Yes (Other)
  Sender: FDA-Public Use
  Company Number: CA-ABBVIE-21K-028-3714991-00

PATIENT
  Sex: Male

DRUGS (3)
  1. HUMIRA [Suspect]
     Active Substance: ADALIMUMAB
     Indication: Crohn^s disease
     Route: 058
     Dates: start: 20201011
  2. PREDNISONE [Suspect]
     Active Substance: PREDNISONE
     Indication: Product used for unknown indication
     Route: 065
  3. VITAMIN B12 [Concomitant]
     Active Substance: CYANOCOBALAMIN
     Indication: Product used for unknown indication
     Route: 050

REACTIONS (22)
  - Gastrointestinal scarring [Unknown]
  - Small intestinal stenosis [Not Recovered/Not Resolved]
  - Gastrointestinal obstruction [Unknown]
  - Intestinal resection [Unknown]
  - Intestinal mucosal hypertrophy [Unknown]
  - Intestinal dilatation [Unknown]
  - Ileal stenosis [Not Recovered/Not Resolved]
  - Intestinal fibrosis [Not Recovered/Not Resolved]
  - Gastrointestinal inflammation [Not Recovered/Not Resolved]
  - Therapeutic product effect incomplete [Not Recovered/Not Resolved]
  - Impaired quality of life [Unknown]
  - Fear of disease [Unknown]
  - Weight increased [Unknown]
  - Abdominal distension [Unknown]
  - Night sweats [Unknown]
  - Musculoskeletal stiffness [Unknown]
  - Depression [Unknown]
  - Abdominal pain [Not Recovered/Not Resolved]
  - Crohn^s disease [Unknown]
  - Muscle spasms [Unknown]
  - Nausea [Unknown]
  - Arthralgia [Unknown]

NARRATIVE: CASE EVENT DATE: 20200101
